FAERS Safety Report 24767306 (Version 2)
Quarter: 2025Q1

REPORT INFORMATION
  Report Type: Spontaneous
  Country: US (occurrence: US)
  Receive Date: 20241223
  Receipt Date: 20250203
  Transmission Date: 20250408
  Serious: Yes (Disabling, Other)
  Sender: AMGEN
  Company Number: US-AMGEN-USASP2024248768

PATIENT
  Sex: Male

DRUGS (24)
  1. TEPEZZA [Suspect]
     Active Substance: TEPROTUMUMAB-TRBW
     Indication: Endocrine ophthalmopathy
     Dosage: 680 MILLIGRAM, Q3WK (INFUSION# 1)
     Route: 040
     Dates: start: 20230118
  2. TEPEZZA [Suspect]
     Active Substance: TEPROTUMUMAB-TRBW
     Indication: Graves^ disease
     Dosage: 1340 MILLIGRAM, Q3WK (INFUSION# 2)
     Route: 040
     Dates: start: 20230208
  3. TEPEZZA [Suspect]
     Active Substance: TEPROTUMUMAB-TRBW
     Dosage: 1320 MILLIGRAM, Q3WK (INFUSION# 3)
     Route: 040
     Dates: start: 20230301
  4. TEPEZZA [Suspect]
     Active Substance: TEPROTUMUMAB-TRBW
     Dosage: 1320 MILLIGRAM, Q3WK (INFUSION# 4)
     Route: 040
     Dates: start: 20230322
  5. TEPEZZA [Suspect]
     Active Substance: TEPROTUMUMAB-TRBW
     Dosage: 1300 MILLIGRAM, Q3WK (INFUSION# 5
     Route: 040
     Dates: start: 20230412
  6. TEPEZZA [Suspect]
     Active Substance: TEPROTUMUMAB-TRBW
     Dosage: 1260 MILLIGRAM, Q3WK (INFUSION# 6)
     Route: 040
     Dates: start: 20230504
  7. TEPEZZA [Suspect]
     Active Substance: TEPROTUMUMAB-TRBW
     Dosage: 1280 MILLIGRAM, Q3WK (INFUSION# 7)
     Route: 040
     Dates: start: 20230525
  8. TEPEZZA [Suspect]
     Active Substance: TEPROTUMUMAB-TRBW
     Dosage: 1280 MILLIGRAM, Q3WK (INFUSION# 8)
     Route: 040
     Dates: start: 20230614
  9. TAPAZOLE [Concomitant]
     Active Substance: METHIMAZOLE
     Dates: start: 20230525
  10. LIPITOR [Concomitant]
     Active Substance: ATORVASTATIN CALCIUM
     Dosage: 80 MILLIGRAM, QD
     Route: 048
     Dates: start: 20230328
  11. TOPROL XL [Concomitant]
     Active Substance: METOPROLOL SUCCINATE
     Dosage: 25 MILLIGRAM, QD
     Route: 048
     Dates: start: 20230315
  12. TOPROL XL [Concomitant]
     Active Substance: METOPROLOL SUCCINATE
     Dosage: 0.5 MILLIGRAM, QD
     Route: 048
  13. ZESTRIL [Concomitant]
     Active Substance: LISINOPRIL
     Dosage: 10 MILLIGRAM, QD
     Route: 048
  14. PRINIVIL [Concomitant]
     Active Substance: LISINOPRIL
     Dosage: 10 MILLIGRAM, QD
     Route: 048
  15. VITAMINS [Concomitant]
     Active Substance: VITAMINS
     Dosage: UNK UNK, QD
     Route: 048
  16. ASPIRIN [Concomitant]
     Active Substance: ASPIRIN
     Dosage: 81 MILLIGRAM, QD
     Route: 048
     Dates: start: 20191129
  17. BUPROPION HYDROCHLORIDE [Concomitant]
     Active Substance: BUPROPION HYDROCHLORIDE
  18. DEFINITY [Concomitant]
     Active Substance: PERFLUTREN
     Route: 040
     Dates: start: 20221028, end: 20240127
  19. ENTRESTO [Concomitant]
     Active Substance: SACUBITRIL\VALSARTAN
     Dosage: UNK UNK, BID
     Route: 048
     Dates: start: 20230915
  20. Bd posiflush [Concomitant]
     Route: 040
     Dates: start: 20221028, end: 20240127
  21. ASPIRIN [Concomitant]
     Active Substance: ASPIRIN
  22. WELLBUTRIN [Concomitant]
     Active Substance: BUPROPION HYDROCHLORIDE
  23. INSULIN GLARGINE [Concomitant]
     Active Substance: INSULIN GLARGINE
  24. MAXITROL [Concomitant]
     Active Substance: DEXAMETHASONE\NEOMYCIN SULFATE\POLYMYXIN B SULFATE
     Dosage: UNK UNK, TID
     Route: 047

REACTIONS (10)
  - Deafness neurosensory [Not Recovered/Not Resolved]
  - Endocrine ophthalmopathy [Unknown]
  - Graves^ disease [Unknown]
  - Pain [Unknown]
  - Emotional distress [Unknown]
  - Anxiety [Unknown]
  - Discomfort [Unknown]
  - Tinnitus [Not Recovered/Not Resolved]
  - Product use complaint [Unknown]
  - Dyspnoea exertional [Unknown]
